FAERS Safety Report 18715197 (Version 1)
Quarter: 2021Q1

REPORT INFORMATION
  Report Type: Spontaneous
  Country: US (occurrence: US)
  Receive Date: 20210108
  Receipt Date: 20210108
  Transmission Date: 20210419
  Serious: Yes (Hospitalization, Other)
  Sender: FDA-Public Use
  Company Number: US-DRREDDYS-USA/USA/21/0130871

PATIENT
  Age: 61 Year
  Sex: Male

DRUGS (1)
  1. SEVELAMER CARBONATE TABLETS, 800 MG [Suspect]
     Active Substance: SEVELAMER CARBONATE
     Indication: END STAGE RENAL DISEASE
     Dosage: FOR SEVERAL YEARS

REACTIONS (4)
  - Large intestine perforation [Recovering/Resolving]
  - Hyperglycaemia [Recovering/Resolving]
  - Cholelithiasis [Recovering/Resolving]
  - Ascites [Recovering/Resolving]
